FAERS Safety Report 5393335-X (Version None)
Quarter: 2007Q3

REPORT INFORMATION
  Report Type: 
  Country: None (occurrence: None)
  Receive Date: 20070723
  Receipt Date: 20070719
  Transmission Date: 20080115
  Serious: Yes (Death, Hospitalization)
  Sender: FDA-Public Use
  Company Number: PHBS2006JP15838

PATIENT
  Age: 66 Year
  Sex: Female
  Weight: 54 kg

DRUGS (7)
  1. CEPHADOL [Suspect]
     Indication: DIZZINESS
     Dosage: 3 DF/DAY
     Route: 048
     Dates: start: 20060725, end: 20061006
  2. URALYT [Suspect]
     Indication: HYPERURICAEMIA
     Dosage: 6 DF/DAY
     Route: 048
     Dates: start: 20060718, end: 20061006
  3. ALLOPURINOL [Suspect]
     Indication: HYPERURICAEMIA
     Dosage: 300 MG/DAY
     Route: 048
     Dates: start: 20060718, end: 20061006
  4. NOVAMIN [Suspect]
     Indication: NAUSEA
     Dosage: 15 MG/DAY
     Route: 048
     Dates: start: 20060725, end: 20061006
  5. TICLOPIDINE HCL [Suspect]
     Indication: CHRONIC MYELOID LEUKAEMIA
     Dosage: 200 MG/DAY
     Route: 048
     Dates: start: 20060725, end: 20061006
  6. MERISLON [Suspect]
     Indication: DIZZINESS
     Dosage: 18 MG/DAY
     Route: 048
     Dates: start: 20060725, end: 20061006
  7. GLEEVEC [Suspect]
     Indication: CHRONIC MYELOID LEUKAEMIA
     Dosage: 400 MG/DAY
     Route: 048
     Dates: start: 20060725, end: 20061006

REACTIONS (24)
  - ALANINE AMINOTRANSFERASE INCREASED [None]
  - ASPARTATE AMINOTRANSFERASE INCREASED [None]
  - BLOOD BILIRUBIN INCREASED [None]
  - BLOOD CREATINE PHOSPHOKINASE INCREASED [None]
  - BLOOD CREATININE INCREASED [None]
  - BLOOD PRESSURE DECREASED [None]
  - BLOOD UREA INCREASED [None]
  - C-REACTIVE PROTEIN INCREASED [None]
  - DEHYDRATION [None]
  - DERMATITIS EXFOLIATIVE [None]
  - DISSEMINATED INTRAVASCULAR COAGULATION [None]
  - DRUG ERUPTION [None]
  - ERYTHEMA [None]
  - FIBRIN DEGRADATION PRODUCTS INCREASED [None]
  - GENERAL PHYSICAL HEALTH DETERIORATION [None]
  - INFECTION [None]
  - INTUBATION [None]
  - MULTI-ORGAN FAILURE [None]
  - ORAL MUCOSA EROSION [None]
  - PYREXIA [None]
  - RESPIRATORY DISORDER [None]
  - SEPSIS [None]
  - SKIN EROSION [None]
  - TOXIC EPIDERMAL NECROLYSIS [None]
